FAERS Safety Report 10202209 (Version 1)
Quarter: 2014Q2

REPORT INFORMATION
  Report Type: Spontaneous
  Country: GB (occurrence: GB)
  Receive Date: 20140528
  Receipt Date: 20140528
  Transmission Date: 20141212
  Serious: Yes (Other)
  Sender: FDA-Public Use
  Company Number: GB-WATSON-2014-10787

PATIENT
  Age: 42 Year
  Sex: Male

DRUGS (6)
  1. METOCLOPRAMIDE (UNKNOWN) [Suspect]
     Indication: NAUSEA
     Dosage: UNK. STARTED BEFORE 6 AND HALF WEEKS AGO.
     Route: 065
     Dates: end: 20140428
  2. ALPRAZOLAM [Concomitant]
     Indication: PRODUCT USED FOR UNKNOWN INDICATION
     Dosage: 0.5 MG, DAILY, SINCE COUPLE OF YEARS.
     Route: 065
  3. AMITRIPTYLINE [Concomitant]
     Indication: PRODUCT USED FOR UNKNOWN INDICATION
     Dosage: 10 MG, DAILY, SINCE 3 MONTHS.
     Route: 065
  4. CO-CODAMOL [Concomitant]
     Indication: PAIN
     Dosage: 500 MG, UNK. SINCE COUPLE OF YEARS.
     Route: 065
  5. DIAZEPAM [Concomitant]
     Indication: PRODUCT USED FOR UNKNOWN INDICATION
     Dosage: 10 MG, DAILY, SINCE COUPLE OF YEARS.
     Route: 065
  6. MORPHINE [Concomitant]
     Indication: PAIN
     Dosage: 60 MG, DAILY,  SINCE 2 MONTHS.
     Route: 065

REACTIONS (7)
  - Confusional state [Recovering/Resolving]
  - Pulse abnormal [Recovering/Resolving]
  - Vertigo [Recovering/Resolving]
  - Muscle tightness [Recovering/Resolving]
  - Pain in jaw [Recovering/Resolving]
  - Ear pain [Recovering/Resolving]
  - Pallor [Recovering/Resolving]
